FAERS Safety Report 4544991-7 (Version None)
Quarter: 2005Q1

REPORT INFORMATION
  Report Type: 
  Country: None (occurrence: None)
  Receive Date: 20050105
  Receipt Date: 20050103
  Transmission Date: 20050727
  Serious: Yes (Hospitalization)
  Sender: FDA-Public Use
  Company Number: US-GLAXOSMITHKLINE-A0539135A

PATIENT
  Age: 38 Year
  Sex: Male

DRUGS (1)
  1. PAXIL [Suspect]
     Indication: DRUG USE FOR UNKNOWN INDICATION
     Route: 048

REACTIONS (12)
  - AGITATION [None]
  - ANGER [None]
  - DIFFICULTY IN WALKING [None]
  - DISABILITY [None]
  - DISORIENTATION [None]
  - FACIAL BONES FRACTURE [None]
  - FOOT FRACTURE [None]
  - FRACTURE [None]
  - LOWER LIMB FRACTURE [None]
  - ROAD TRAFFIC ACCIDENT [None]
  - SUICIDE ATTEMPT [None]
  - THERMAL BURN [None]
